FAERS Safety Report 6314251-2 (Version None)
Quarter: 2009Q3

REPORT INFORMATION
  Report Type: 
  Country: None (occurrence: None)
  Receive Date: 20090817
  Receipt Date: 20090810
  Transmission Date: 20100115
  Serious: Yes (Life-Threatening, Other)
  Sender: FDA-Public Use
  Company Number: 1419181-2008-0002

PATIENT
  Age: 24 Year
  Sex: Male
  Weight: 80.7403 kg

DRUGS (2)
  1. CHLORHEXIDINE GLUCONATE [Suspect]
     Indication: ANTI-INFECTIVE THERAPY
     Dosage: 3000MG DAILY TOPICAL
     Route: 061
     Dates: start: 20080622, end: 20080703
  2. CENTRAL LINE AND ARTERIAL LINE [Concomitant]

REACTIONS (6)
  - BLOOD DISORDER [None]
  - BURKHOLDERIA CEPACIA COMPLEX INFECTION [None]
  - CATHETER RELATED INFECTION [None]
  - CENTRAL LINE INFECTION [None]
  - INFECTION [None]
  - PRODUCT QUALITY ISSUE [None]
